FAERS Safety Report 8573481-X (Version None)
Quarter: 2012Q3

REPORT INFORMATION
  Report Type: 
  Country: None (occurrence: None)
  Receive Date: 20120806
  Receipt Date: 20120726
  Transmission Date: 20120928
  Serious: Yes (Other)
  Sender: FDA-Public Use
  Company Number: US-ELI_LILLY_AND_COMPANY-US201205010042

PATIENT
  Sex: Female

DRUGS (6)
  1. BETA BLOCKING AGENTS [Concomitant]
     Dosage: UNK, UNKNOWN
  2. FLUOXETINE HCL [Concomitant]
     Dosage: UNK, UNKNOWN
  3. LEVOTHYROXINE SODIUM [Concomitant]
     Dosage: UNK, UNKNOWN
  4. HUMATROPE [Suspect]
     Indication: GROWTH HORMONE DEFICIENCY
     Dosage: 0.8 MG, QD
     Dates: start: 20080101
  5. GABAPENTIN [Concomitant]
     Dosage: UNK, UNKNOWN
  6. MECLIZINE [Concomitant]
     Dosage: UNK, UNKNOWN

REACTIONS (8)
  - FATIGUE [None]
  - TEMPERATURE INTOLERANCE [None]
  - DIZZINESS [None]
  - DYSARTHRIA [None]
  - SYNCOPE [None]
  - HYPERHIDROSIS [None]
  - FEELING HOT [None]
  - TINNITUS [None]
